FAERS Safety Report 18186687 (Version 1)
Quarter: 2020Q3

REPORT INFORMATION
  Report Type: Spontaneous
  Country: US (occurrence: US)
  Receive Date: 20200824
  Receipt Date: 20200824
  Transmission Date: 20201103
  Serious: No
  Sender: FDA-Public Use
  Company Number: US-PFIZER INC-2020324429

PATIENT
  Age: 67 Year
  Sex: Female

DRUGS (5)
  1. BOSULIF [Suspect]
     Active Substance: BOSUTINIB MONOHYDRATE
     Indication: CHRONIC MYELOID LEUKAEMIA
     Dosage: 400 MG, DAILY(4 TABS)
     Route: 048
     Dates: start: 20200804
  2. GREEN TEA [CAMELLIA SINENSIS] [Concomitant]
     Dosage: UNK (250MCG?775)
  3. ASPIRIN [ACETYLSALICYLIC ACID] [Concomitant]
     Active Substance: ASPIRIN
     Dosage: UNK (81MG)
  4. VITAMIN A [RETINOL] [Concomitant]
     Active Substance: RETINOL
     Dosage: 10000 IU
  5. CURCUMIN [CURCUMA LONGA] [Concomitant]
     Dosage: 100% POWDER

REACTIONS (1)
  - Diarrhoea [Unknown]
